APPROVED DRUG PRODUCT: SODIUM BICARBONATE IN PLASTIC CONTAINER
Active Ingredient: SODIUM BICARBONATE
Strength: 44.6MEQ/50ML (0.9MEQ/ML) **Federal Register determination that product was not discontinued or withdrawn for safety or effectiveness reasons**
Dosage Form/Route: SOLUTION;INTRAVENOUS
Application: N019443 | Product #001
Applicant: ABBOTT LABORATORIES PHARMACEUTICAL PRODUCTS DIV
Approved: Jun 3, 1986 | RLD: Yes | RS: No | Type: DISCN